FAERS Safety Report 7350150-5 (Version None)
Quarter: 2011Q1

REPORT INFORMATION
  Report Type: 
  Country: None (occurrence: None)
  Receive Date: 20110314
  Receipt Date: 20110304
  Transmission Date: 20110831
  Serious: Yes (Other)
  Sender: FDA-Public Use
  Company Number: B0689432A

PATIENT
  Sex: Female

DRUGS (3)
  1. CLOMID [Concomitant]
     Indication: OVULATION INDUCTION
     Dosage: 100MG PER DAY
     Route: 048
     Dates: start: 20100701, end: 20100901
  2. VALTREX [Suspect]
     Indication: GENITAL HERPES
     Dosage: 500MG PER DAY
     Route: 048
     Dates: start: 20070401, end: 20101017
  3. ZOVIRAX [Suspect]
     Indication: GENITAL HERPES
     Route: 062
     Dates: start: 20101028, end: 20101118

REACTIONS (3)
  - ABORTION [None]
  - CYTOGENETIC ABNORMALITY [None]
  - DRUG EXPOSURE DURING PREGNANCY [None]
